FAERS Safety Report 9458404 (Version 2)
Quarter: 2013Q3

REPORT INFORMATION
  Report Type: Spontaneous
  Country: DE (occurrence: DE)
  Receive Date: 20130814
  Receipt Date: 20130924
  Transmission Date: 20140515
  Serious: Yes (Death, Other)
  Sender: FDA-Public Use
  Company Number: DE-ROCHE-1259601

PATIENT
  Sex: Female
  Weight: 79 kg

DRUGS (7)
  1. ROACTEMRA [Suspect]
     Indication: RHEUMATOID ARTHRITIS
     Route: 042
     Dates: start: 20130510
  2. ASPIRIN [Concomitant]
     Route: 048
  3. PREDNISOLON [Concomitant]
     Indication: RHEUMATOID ARTHRITIS
     Route: 048
  4. SPIRONOLACTON [Concomitant]
     Route: 048
  5. VALSARTAN [Concomitant]
     Route: 048
     Dates: start: 20130226
  6. METFORMIN [Concomitant]
     Route: 048
  7. DEKRISTOL [Concomitant]
     Route: 048

REACTIONS (2)
  - Cardiac failure [Fatal]
  - Dermatitis allergic [Unknown]
